FAERS Safety Report 12083014 (Version 1)
Quarter: 2016Q1

REPORT INFORMATION
  Report Type: Spontaneous
  Country: US (occurrence: None)
  Receive Date: 20160216
  Receipt Date: 20160216
  Transmission Date: 20160526
  Serious: Yes (Other)
  Sender: FDA-Public Use
  Company Number: None

PATIENT
  Age: 44 Year
  Sex: Female

DRUGS (1)
  1. TYSABRI [Suspect]
     Active Substance: NATALIZUMAB
     Indication: MULTIPLE SCLEROSIS
     Dosage: 300M Q4WKS IV
     Route: 042

REACTIONS (5)
  - Swelling [None]
  - Blood pressure decreased [None]
  - Musculoskeletal stiffness [None]
  - Pruritus [None]
  - Chest pain [None]

NARRATIVE: CASE EVENT DATE: 20160203
